FAERS Safety Report 8992361 (Version 4)
Quarter: 2013Q2

REPORT INFORMATION
  Report Type: Report from Study
  Country: JP (occurrence: JP)
  Receive Date: 20121231
  Receipt Date: 20130424
  Transmission Date: 20140414
  Serious: Yes (Hospitalization, Other)
  Sender: FDA-Public Use
  Company Number: JP-JNJFOC-20120402046

PATIENT
  Age: 79 Year
  Sex: Female
  Weight: 53 kg

DRUGS (14)
  1. DUROTEP MT [Suspect]
     Indication: PAIN
     Route: 062
     Dates: start: 20120911
  2. DUROTEP MT [Suspect]
     Indication: PAIN
     Route: 062
     Dates: start: 20111021, end: 20120910
  3. ACTEMRA [Suspect]
     Indication: PAIN
     Route: 065
     Dates: start: 20091225
  4. RIVOTRIL [Concomitant]
     Indication: AUTONOMIC SEIZURE
     Route: 048
  5. METHYCOBAL [Concomitant]
     Indication: NEUROPATHY PERIPHERAL
     Route: 065
  6. DISOPYRAMIDE PHOSPHATE [Concomitant]
     Indication: VENTRICULAR EXTRASYSTOLES
     Route: 048
  7. FAMOTIDINE [Concomitant]
     Indication: GASTROOESOPHAGEAL REFLUX DISEASE
     Route: 048
  8. NEUROTROPIN [Concomitant]
     Indication: BACK PAIN
     Route: 048
  9. DEPAS [Concomitant]
     Indication: ANXIETY DISORDER
     Route: 048
  10. JZOLOFT [Concomitant]
     Indication: DEPRESSION
     Route: 048
  11. PREDONINE [Concomitant]
     Indication: PAIN
     Route: 048
  12. EVISTA [Concomitant]
     Indication: OSTEOPOROSIS
     Route: 048
  13. TRAMADOL/APAP [Concomitant]
     Route: 065
     Dates: end: 20111020
  14. VOLTAREN [Concomitant]
     Indication: BACK PAIN
     Route: 062
     Dates: start: 20120211

REACTIONS (3)
  - Pneumonia [Recovering/Resolving]
  - Platelet count decreased [Recovered/Resolved]
  - Incorrect drug administration duration [Unknown]
